FAERS Safety Report 4845417-6 (Version None)
Quarter: 2005Q4

REPORT INFORMATION
  Report Type: 
  Country: None (occurrence: None)
  Receive Date: 20051125
  Receipt Date: 20051114
  Transmission Date: 20060501
  Serious: Yes (Death, Life-Threatening)
  Sender: FDA-Public Use
  Company Number: 2005156460

PATIENT
  Age: 76 Year
  Sex: Female

DRUGS (2)
  1. CAMPTOSAR [Suspect]
     Indication: COLON CANCER
     Dosage: 250 MG (TOTAL), INTRAVENOUS
     Route: 042
     Dates: start: 20050823
  2. CETUXIMAB  (CETUXIMAB) [Suspect]
     Indication: COLON CANCER
     Dosage: 360 MG (TAOTAL), INTRAVENOUS
     Route: 042
     Dates: start: 20050823

REACTIONS (9)
  - DIABETES MELLITUS [None]
  - HYPONATRAEMIA [None]
  - KETONURIA [None]
  - NERVOUS SYSTEM DISORDER [None]
  - PAIN [None]
  - SEPTIC SHOCK [None]
  - SKIN EXFOLIATION [None]
  - SKIN LESION [None]
  - SKIN TOXICITY [None]
